FAERS Safety Report 9789034 (Version 1)
Quarter: 2013Q4

REPORT INFORMATION
  Report Type: Spontaneous
  Country: US (occurrence: US)
  Receive Date: 20131230
  Receipt Date: 20131230
  Transmission Date: 20140711
  Serious: Yes (Hospitalization)
  Sender: FDA-Public Use
  Company Number: US-TEVA-453475USA

PATIENT
  Age: 58 Year
  Sex: Male

DRUGS (3)
  1. AMIODARONE [Suspect]
     Indication: ARRHYTHMIA PROPHYLAXIS
     Dosage: LOADING; THEN ORAL 400MG 4 TIMES DAILY
     Route: 042
  2. AMIODARONE [Suspect]
     Indication: ARRHYTHMIA PROPHYLAXIS
     Route: 048
  3. SOTALOL [Concomitant]
     Route: 065

REACTIONS (1)
  - Hyponatraemia [Recovered/Resolved]
